FAERS Safety Report 9596493 (Version 2)
Quarter: 2013Q4

REPORT INFORMATION
  Report Type: Spontaneous
  Country: US (occurrence: US)
  Receive Date: 20131004
  Receipt Date: 20131030
  Transmission Date: 20140711
  Serious: No
  Sender: FDA-Public Use
  Company Number: US-PFIZER INC-2013281830

PATIENT
  Sex: Female

DRUGS (3)
  1. CHILDREN^S MOTRIN [Suspect]
     Indication: PAIN IN EXTREMITY
     Dosage: UNK
     Dates: start: 20130905
  2. CHILDREN^S MOTRIN [Suspect]
     Indication: FOOT FRACTURE
  3. CHILDREN^S MOTRIN [Suspect]
     Indication: LOWER LIMB FRACTURE

REACTIONS (1)
  - No adverse event [Unknown]
